FAERS Safety Report 4658563-7 (Version None)
Quarter: 2005Q2

REPORT INFORMATION
  Report Type: 
  Country: None (occurrence: None)
  Receive Date: 20050511
  Receipt Date: 20050407
  Transmission Date: 20051028
  Serious: Yes (Disabling)
  Sender: FDA-Public Use
  Company Number: US-BOEHRINGER INGELHEIM PHARMACEUTICALS, INC.-2005-BP-05709BP

PATIENT
  Age: 51 Year
  Sex: Female
  Weight: 54.5 kg

DRUGS (11)
  1. SPIRIVA [Suspect]
     Indication: ASTHMA
     Route: 055
     Dates: start: 20050407, end: 20050418
  2. SPIRIVA [Suspect]
     Indication: BRONCHOSPASM
  3. SEREVENT [Concomitant]
     Indication: ASTHMA
  4. SINGULAIR [Concomitant]
     Indication: ASTHMA
  5. PRILOSEC [Concomitant]
     Indication: GASTROOESOPHAGEAL REFLUX DISEASE
  6. CLARITIN [Concomitant]
     Indication: ASTHMA
  7. THYROID TAB [Concomitant]
     Indication: HYPOTHYROIDISM
  8. ALBUTEROL [Concomitant]
     Indication: ASTHMA
     Dosage: 2 PUFFS Q 6-8 HOURS
  9. ACIPHEX [Concomitant]
     Route: 048
  10. ACTONEL [Concomitant]
  11. ZOLOFT [Concomitant]
     Route: 048

REACTIONS (3)
  - ASTHMA [None]
  - DRUG INEFFECTIVE [None]
  - RESPIRATORY DISTRESS [None]
